FAERS Safety Report 10907159 (Version 1)
Quarter: 2015Q1

REPORT INFORMATION
  Report Type: Spontaneous
  Country: US (occurrence: None)
  Receive Date: 20150309
  Receipt Date: 20150309
  Transmission Date: 20150721
  Serious: No
  Sender: FDA-Public Use
  Company Number: 1210513-2015-00042

PATIENT
  Sex: Female

DRUGS (1)
  1. WALMART EQUATE ORASOL [Suspect]
     Active Substance: BENZOCAINE
     Indication: ANALGESIC THERAPY
     Dosage: ORAL 047
     Route: 048

REACTIONS (2)
  - Lip swelling [None]
  - Swollen tongue [None]

NARRATIVE: CASE EVENT DATE: 20120309
